FAERS Safety Report 19935847 (Version 2)
Quarter: 2022Q1

REPORT INFORMATION
  Report Type: Spontaneous
  Country: US (occurrence: None)
  Receive Date: 20211008
  Receipt Date: 20220121
  Transmission Date: 20220424
  Serious: No
  Sender: FDA-Public Use
  Company Number: US-MERCK HEALTHCARE KGAA-9269532

PATIENT
  Age: 26 Year
  Sex: Female

DRUGS (2)
  1. REBIF [Suspect]
     Active Substance: INTERFERON BETA-1A
     Indication: Multiple sclerosis
     Route: 058
     Dates: start: 20200511
  2. ADVIL 6 PLUS [Concomitant]
     Indication: Premedication

REACTIONS (6)
  - Vitreous floaters [Unknown]
  - Hangover [Unknown]
  - Injection site pain [Recovering/Resolving]
  - Fatigue [Unknown]
  - Injection site bruising [Unknown]
  - Pruritus [Recovered/Resolved]

NARRATIVE: CASE EVENT DATE: 20211201
